FAERS Safety Report 5023075-8 (Version None)
Quarter: 2006Q2

REPORT INFORMATION
  Report Type: 
  Country: None (occurrence: None)
  Receive Date: 20060502
  Receipt Date: 20051007
  Transmission Date: 20061013
  Serious: Yes (Other)
  Sender: FDA-Public Use
  Company Number: PHEH2005US06112

PATIENT
  Sex: Female

DRUGS (12)
  1. LOTREL [Suspect]
     Indication: BLOOD PRESSURE
     Dosage: SEE IMAGE
     Route: 048
     Dates: end: 20050421
  2. CELEXA [Concomitant]
  3. SINGULAIR [Concomitant]
  4. HYDROCHLOROTHIAZIDE [Concomitant]
  5. ZOCOR [Concomitant]
  6. VICODIN [Concomitant]
  7. INSULIN [Concomitant]
  8. DETROL [Concomitant]
  9. LEVOXYL [Concomitant]
  10. CELEBREX [Concomitant]
  11. ZESTRIL [Concomitant]
  12. BENICAR [Concomitant]

REACTIONS (4)
  - CATHETERISATION CARDIAC ABNORMAL [None]
  - EJECTION FRACTION ABNORMAL [None]
  - MYOCARDIAL INFARCTION [None]
  - STENT PLACEMENT [None]
